FAERS Safety Report 6332639-0 (Version None)
Quarter: 2009Q3

REPORT INFORMATION
  Report Type: 
  Country: None (occurrence: None)
  Receive Date: 20090828
  Receipt Date: 20090821
  Transmission Date: 20100115
  Serious: Yes (Other)
  Sender: FDA-Public Use
  Company Number: US-JNJFOC-20090805626

PATIENT
  Sex: Female
  Weight: 68.04 kg

DRUGS (16)
  1. FENTANYL TRANSDERMAL SYSTEM [Suspect]
     Route: 062
  2. FENTANYL TRANSDERMAL SYSTEM [Suspect]
     Route: 062
  3. FENTANYL TRANSDERMAL SYSTEM [Suspect]
     Dosage: 100 MCG OF 150 MCG PATCH
     Route: 062
  4. FENTANYL TRANSDERMAL SYSTEM [Suspect]
     Dosage: 50 MCG OF 150 MCG PATCH
     Route: 062
  5. FENTANYL TRANSDERMAL SYSTEM [Suspect]
     Route: 062
  6. FENTANYL TRANSDERMAL SYSTEM [Suspect]
     Indication: BACK PAIN
     Route: 062
  7. TRAZODONE HCL [Suspect]
     Indication: DEPRESSION
     Route: 048
  8. ROXICET [Concomitant]
     Indication: PAIN
     Route: 048
  9. PERCOCET [Concomitant]
     Indication: PAIN
     Route: 048
  10. ESTRADIOL [Concomitant]
     Indication: HORMONE REPLACEMENT THERAPY
     Route: 048
  11. PAXIL [Concomitant]
     Indication: DEPRESSION
     Route: 048
  12. AMBIEN [Concomitant]
     Indication: SLEEP DISORDER
     Route: 048
  13. FLEXERIL [Concomitant]
     Indication: PAIN
     Route: 048
  14. LAMOTRIGINE [Concomitant]
     Indication: BIPOLAR DISORDER
     Route: 048
  15. DICLOFENAC [Concomitant]
     Indication: BACK PAIN
     Route: 048
  16. MAGNESIUM [Concomitant]
     Route: 048

REACTIONS (12)
  - APHASIA [None]
  - DISORIENTATION [None]
  - DYSARTHRIA [None]
  - EAR INFECTION [None]
  - FATIGUE [None]
  - FEELING ABNORMAL [None]
  - HYPERTENSION [None]
  - INAPPROPRIATE SCHEDULE OF DRUG ADMINISTRATION [None]
  - PRODUCT QUALITY ISSUE [None]
  - TREATMENT NONCOMPLIANCE [None]
  - UNEVALUABLE EVENT [None]
  - WRONG TECHNIQUE IN DRUG USAGE PROCESS [None]
